FAERS Safety Report 6169042-2 (Version None)
Quarter: 2009Q2

REPORT INFORMATION
  Report Type: 
  Country: None (occurrence: None)
  Receive Date: 20090427
  Receipt Date: 20071023
  Transmission Date: 20091009
  Serious: Yes (Hospitalization)
  Sender: FDA-Public Use
  Company Number: FR-PFIZER INC-2009194845

PATIENT

DRUGS (3)
  1. EPIRUBICIN HCL [Suspect]
     Indication: METASTATIC GASTRIC CANCER
     Dosage: 74 MG, UNK
     Route: 042
     Dates: start: 20070912, end: 20070912
  2. CISPLATIN [Suspect]
     Indication: METASTATIC GASTRIC CANCER
     Dosage: 89 MG, UNK
     Route: 042
     Dates: start: 20070912, end: 20070912
  3. CAPECITABINE [Suspect]
     Indication: METASTATIC GASTRIC CANCER
     Dosage: 1451 MG, 2X/DAY
     Route: 048
     Dates: start: 20070913, end: 20070924

REACTIONS (3)
  - GENERAL PHYSICAL HEALTH DETERIORATION [None]
  - HAEMATOTOXICITY [None]
  - MUCOSAL INFLAMMATION [None]
